FAERS Safety Report 5335603-3 (Version None)
Quarter: 2007Q2

REPORT INFORMATION
  Report Type: 
  Country: None (occurrence: None)
  Receive Date: 20070526
  Receipt Date: 20070515
  Transmission Date: 20071010
  Serious: Yes (Other)
  Sender: FDA-Public Use
  Company Number: BE-PFIZER INC-2006074027

PATIENT
  Sex: Male

DRUGS (5)
  1. XANAX RETARD [Suspect]
     Indication: DEPRESSION
     Route: 048
     Dates: start: 20050101, end: 20060101
  2. ALPRAZ [Suspect]
     Indication: DEPRESSION
     Route: 048
  3. PAROXETINE [Suspect]
     Indication: DEPRESSION
     Dosage: DAILY DOSE:20MG
     Route: 048
     Dates: start: 20050101, end: 20060101
  4. FLUOXETINE [Suspect]
     Dosage: DAILY DOSE:20MG
     Route: 048
     Dates: start: 20050101, end: 20060101
  5. DAFALGAN [Concomitant]

REACTIONS (2)
  - DRUG EXPOSURE DURING PREGNANCY [None]
  - DRUG WITHDRAWAL SYNDROME NEONATAL [None]
